FAERS Safety Report 9305367 (Version 4)
Quarter: 2013Q3

REPORT INFORMATION
  Report Type: Report from Study
  Country: US (occurrence: US)
  Receive Date: 20130523
  Receipt Date: 20130807
  Transmission Date: 20140515
  Serious: Yes (Hospitalization)
  Sender: FDA-Public Use
  Company Number: US-BRISTOL-MYERS SQUIBB COMPANY-18916924

PATIENT
  Age: 52 Year
  Sex: Male

DRUGS (3)
  1. IPILIMUMAB [Suspect]
     Indication: METASTATIC MALIGNANT MELANOMA
     Dosage: LAST DOSE: 15APR2013
     Route: 042
     Dates: start: 20130415, end: 20130510
  2. VICODIN [Concomitant]
  3. PROTONIX [Concomitant]

REACTIONS (3)
  - Colitis [Recovered/Resolved]
  - Dehydration [Recovered/Resolved]
  - Oesophageal perforation [Recovered/Resolved]
